FAERS Safety Report 5778137-4 (Version None)
Quarter: 2008Q2

REPORT INFORMATION
  Report Type: 
  Country: None (occurrence: None)
  Receive Date: 20080619
  Receipt Date: 20080613
  Transmission Date: 20081010
  Serious: Yes (Life-Threatening, Hospitalization)
  Sender: FDA-Public Use
  Company Number: FR-JNJFOC-20080504275

PATIENT
  Age: 17 Year
  Sex: Female

DRUGS (5)
  1. RISPERDAL CONSTA [Suspect]
     Indication: PSYCHOTIC DISORDER
     Route: 030
  2. RISPERDAL CONSTA [Suspect]
     Indication: DELIRIUM
     Route: 030
  3. RISPERDAL [Suspect]
     Indication: PSYCHOTIC DISORDER
     Route: 048
  4. RISPERDAL [Suspect]
     Indication: DELIRIUM
     Route: 048
  5. RIVOTRIL [Concomitant]
     Indication: ANXIETY
     Route: 048

REACTIONS (6)
  - ADRENAL INSUFFICIENCY [None]
  - AUTOIMMUNE THYROIDITIS [None]
  - ENCEPHALITIS [None]
  - HYPERPROLACTINAEMIA [None]
  - HYPONATRAEMIA [None]
  - HYPOTHYROIDISM [None]
